FAERS Safety Report 15317127 (Version 1)
Quarter: 2018Q3

REPORT INFORMATION
  Report Type: Report from Study
  Country: US (occurrence: BR)
  Receive Date: 20180824
  Receipt Date: 20180824
  Transmission Date: 20181010
  Serious: Yes (Death, Other)
  Sender: FDA-Public Use
  Company Number: US-SUNOVION-2018SUN003302

PATIENT
  Sex: Male
  Weight: 45 kg

DRUGS (1)
  1. INDACATEROL AND GLYCOPYRROLATE [Suspect]
     Active Substance: GLYCOPYRROLATE\INDACATEROL MALEATE
     Indication: PRODUCT USED FOR UNKNOWN INDICATION
     Dosage: 1 DF (50 UG OF GLYCOPYRRONIUM BROMIDE AND 110 UG OF INDACATEROL), QD
     Route: 055
     Dates: start: 201801

REACTIONS (6)
  - Fall [Unknown]
  - Post procedural complication [Fatal]
  - Cardiac arrest [Fatal]
  - Cerebrovascular accident [Unknown]
  - Lung perforation [Unknown]
  - Body surface area decreased [Unknown]

NARRATIVE: CASE EVENT DATE: 20180806
